FAERS Safety Report 6019354-8 (Version None)
Quarter: 2008Q4

REPORT INFORMATION
  Report Type: 
  Country: None (occurrence: None)
  Receive Date: 20081224
  Receipt Date: 20081217
  Transmission Date: 20090506
  Serious: Yes (Hospitalization)
  Sender: FDA-Public Use
  Company Number: US-BIOGENIDEC-2007BI010937

PATIENT
  Age: 44 Year
  Sex: Male

DRUGS (2)
  1. AVONEX [Suspect]
     Indication: MULTIPLE SCLEROSIS
     Route: 030
     Dates: start: 20051101, end: 20061001
  2. AVONEX [Suspect]
     Route: 030
     Dates: start: 20070301

REACTIONS (8)
  - ALCOHOL POISONING [None]
  - ANAESTHETIC COMPLICATION [None]
  - BLOOD GLUCOSE DECREASED [None]
  - CHRONIC OBSTRUCTIVE PULMONARY DISEASE [None]
  - DEVICE BREAKAGE [None]
  - FALL [None]
  - FEMUR FRACTURE [None]
  - OSTEONECROSIS [None]
